FAERS Safety Report 5038127-6 (Version None)
Quarter: 2006Q2

REPORT INFORMATION
  Report Type: 
  Country: None (occurrence: None)
  Receive Date: 20060622
  Receipt Date: 20060609
  Transmission Date: 20061013
  Serious: Yes (Hospitalization)
  Sender: FDA-Public Use
  Company Number: 2006046124

PATIENT
  Age: 68 Year
  Sex: Male
  Weight: 57 kg

DRUGS (9)
  1. EPIRUBICIN [Suspect]
     Indication: HEPATIC NEOPLASM MALIGNANT
     Dosage: 10 MG (10 MG, ONCE), INTRA-ARTERIAL
     Route: 013
     Dates: start: 20060228, end: 20060328
  2. CISPLATIN [Suspect]
     Indication: HEPATIC NEOPLASM MALIGNANT
     Dosage: 5 MG (5 MG, QD), INTRA-ARTERIAL
     Route: 013
     Dates: start: 20060228, end: 20060328
  3. LIVACT (AMINO ACIDS NOS) [Concomitant]
  4. OMEPRAZOLE [Concomitant]
  5. GLAKAY (MEANTETRENONE) [Concomitant]
  6. LASIX [Concomitant]
  7. ALDACTONE [Concomitant]
  8. BIOFERM             (BACILLUS SUBTILIS, LACTOBACILLUS ACIDOPHILUS, STR [Concomitant]
  9. UFT [Concomitant]

REACTIONS (9)
  - ABDOMINAL DISCOMFORT [None]
  - ANAPHYLACTOID REACTION [None]
  - BLOOD PRESSURE DECREASED [None]
  - DYSPNOEA [None]
  - ERYTHEMA [None]
  - HYPOXIA [None]
  - NAUSEA [None]
  - PRURITUS [None]
  - RASH [None]
